FAERS Safety Report 23181804 (Version 1)
Quarter: 2023Q4

REPORT INFORMATION
  Report Type: Spontaneous
  Country: NL (occurrence: NL)
  Receive Date: 20231114
  Receipt Date: 20231114
  Transmission Date: 20240109
  Serious: Yes (Life-Threatening, Hospitalization, Other)
  Sender: FDA-Public Use
  Company Number: None

PATIENT
  Age: 73 Year
  Sex: Female
  Weight: 75 kg

DRUGS (16)
  1. ACETAMINOPHEN [Interacting]
     Active Substance: ACETAMINOPHEN
     Indication: Osteoarthritis
     Dosage: 4X PER DAY 2 PIECES
     Route: 065
     Dates: start: 20230906, end: 20231003
  2. ACETAMINOPHEN [Interacting]
     Active Substance: ACETAMINOPHEN
     Indication: Postoperative care
  3. FUROSEMIDE [Concomitant]
     Active Substance: FUROSEMIDE
     Dosage: TABLET, 40 MG (MILLIGRAM)
  4. LEVOCETIRIZINE [Concomitant]
     Active Substance: LEVOCETIRIZINE
     Dosage: FILMOMHULDE TABLET, 5 MG (MILLIGRAM)
  5. CHOLECALCIFEROL [Concomitant]
     Active Substance: CHOLECALCIFEROL
     Dosage: DRANK, 25000 IE/ML (EENHEDEN PER MILLILITER)
  6. AMITRIPTYLINE [Concomitant]
     Active Substance: AMITRIPTYLINE
     Dosage: TABLET, 10 MG (MILLIGRAM)
  7. HYDROXYCHLOROQUINE [Concomitant]
     Active Substance: HYDROXYCHLOROQUINE
     Dosage: OMHULDE TABLET, 200 MG (MILLIGRAM)
  8. CLOPIDOGREL [Concomitant]
     Active Substance: CLOPIDOGREL BISULFATE
     Dosage: TABLET, 75 MG (MILLIGRAM)
  9. NIFEDIPINE [Concomitant]
     Active Substance: NIFEDIPINE
     Dosage: TABLET MET GEREGULEERDE AFGIFTE, 30 MG (MILLIGRAM)
  10. FLUCLOXACILLIN [Interacting]
     Active Substance: FLUCLOXACILLIN
     Indication: Staphylococcal bacteraemia
     Dosage: 12G/DG
     Dates: start: 20230911, end: 20231003
  11. FLUCLOXACILLIN [Interacting]
     Active Substance: FLUCLOXACILLIN
     Indication: Aortic valve replacement
  12. PREDNISOLONE [Concomitant]
     Active Substance: PREDNISOLONE
     Dosage: TABLET, 5 MG (MILLIGRAM)
  13. PANTOPRAZOLE [Concomitant]
     Active Substance: PANTOPRAZOLE
     Dosage: TABLET MSR 40MG, 2X PER DAG 1 STUK
  14. CANDESARTAN [Concomitant]
     Active Substance: CANDESARTAN
     Dosage: TABLET, 4 MG (MILLIGRAM)
  15. ALENDRONIC ACID [Concomitant]
     Active Substance: ALENDRONIC ACID
     Dosage: TABLET, 70 MG (MILLIGRAM)
  16. DURATEARS [DEXTRAN 70;HYPROMELLOSE] [Concomitant]
     Dosage: FLACON 15ML, 2-4X PER DAG 1 DRUPPEL IN BEIDE OGEN

REACTIONS (2)
  - Drug interaction [Recovering/Resolving]
  - Metabolic acidosis [Recovering/Resolving]
